FAERS Safety Report 6661245-3 (Version None)
Quarter: 2010Q1

REPORT INFORMATION
  Report Type: 
  Country: None (occurrence: None)
  Receive Date: 20100331
  Receipt Date: 20100329
  Transmission Date: 20100710
  Serious: Yes (Death)
  Sender: FDA-Public Use
  Company Number: GB-ROCHE-689482

PATIENT
  Sex: Female
  Weight: 70 kg

DRUGS (8)
  1. TRASTUZUMAB [Suspect]
     Dosage: FORM:IV
     Route: 042
     Dates: start: 20100223
  2. PLACEBO [Suspect]
     Dosage: FORM: IV
     Route: 042
     Dates: start: 20100222
  3. DOCETAXEL [Suspect]
     Dosage: FORM:IV
     Route: 042
     Dates: start: 20100223
  4. RAMIPRIL [Concomitant]
  5. BENDROFLUAZIDE [Concomitant]
  6. AMLODIPINE [Concomitant]
  7. ACETAMINOPHEN AND CODEINE PHOSPHATE [Concomitant]
     Dates: start: 20091201
  8. LORATADINE [Concomitant]
     Dates: start: 20100101

REACTIONS (2)
  - INTESTINAL PERFORATION [None]
  - NEUTROPENIC SEPSIS [None]
